FAERS Safety Report 11423033 (Version 2)
Quarter: 2015Q3

REPORT INFORMATION
  Report Type: Report from Study
  Country: US (occurrence: US)
  Receive Date: 20150827
  Receipt Date: 20150916
  Transmission Date: 20151125
  Serious: No
  Sender: FDA-Public Use
  Company Number: US-SA-2014SA179366

PATIENT
  Age: 41 Year
  Sex: Female

DRUGS (1)
  1. KYNAMRO [Suspect]
     Active Substance: MIPOMERSEN SODIUM
     Indication: TYPE IIA HYPERLIPIDAEMIA
     Route: 058
     Dates: start: 20141214

REACTIONS (9)
  - Rash erythematous [Recovering/Resolving]
  - Injection site erythema [Recovered/Resolved]
  - Urticaria [Recovering/Resolving]
  - Adverse reaction [Recovering/Resolving]
  - Drug dose omission [Unknown]
  - Injection site pain [Recovered/Resolved]
  - Hepatic enzyme increased [Not Recovered/Not Resolved]
  - Injection site pain [Recovering/Resolving]
  - Injection site urticaria [Recovering/Resolving]

NARRATIVE: CASE EVENT DATE: 201412
